FAERS Safety Report 21477163 (Version 2)
Quarter: 2024Q2

REPORT INFORMATION
  Report Type: Report from Study
  Country: FI (occurrence: FI)
  Receive Date: 20221019
  Receipt Date: 20240614
  Transmission Date: 20240715
  Serious: Yes (Hospitalization, Other)
  Sender: FDA-Public Use
  Company Number: FI-JNJFOC-20221023324

PATIENT

DRUGS (1)
  1. STELARA [Suspect]
     Active Substance: USTEKINUMAB
     Indication: Crohn^s disease
     Route: 058

REACTIONS (32)
  - Hepatitis [Unknown]
  - Lymphoma [Unknown]
  - Infection [Unknown]
  - Urinary tract infection [Unknown]
  - Pneumonia [Unknown]
  - Diverticulitis [Unknown]
  - Cellulitis [Unknown]
  - Pharyngitis [Unknown]
  - Tooth infection [Unknown]
  - Herpes zoster [Unknown]
  - Sinusitis [Unknown]
  - Vulvovaginal candidiasis [Unknown]
  - Gastroenteritis viral [Unknown]
  - Abscess [Unknown]
  - Neuropathy peripheral [Unknown]
  - Aspergillus infection [Unknown]
  - Cytomegalovirus colitis [Unknown]
  - Acute respiratory distress syndrome [Unknown]
  - Otitis media [Unknown]
  - Orchitis [Unknown]
  - Pneumocystis jirovecii pneumonia [Unknown]
  - Oesophageal candidiasis [Unknown]
  - Bacteraemia [Unknown]
  - Sepsis [Unknown]
  - Tuberculosis [Unknown]
  - Clostridium difficile colitis [Unknown]
  - Arthralgia [Unknown]
  - Vasculitis [Unknown]
  - Rash [Unknown]
  - Alopecia [Unknown]
  - Headache [Unknown]
  - Therapeutic response decreased [Unknown]
